FAERS Safety Report 5227922-6 (Version None)
Quarter: 2007Q1

REPORT INFORMATION
  Report Type: 
  Country: None (occurrence: None)
  Receive Date: 20070202
  Receipt Date: 20070122
  Transmission Date: 20070707
  Serious: Yes (Hospitalization)
  Sender: FDA-Public Use
  Company Number: US-PFIZER INC-2006015697

PATIENT
  Sex: Female
  Weight: 77.6 kg

DRUGS (9)
  1. SUTENT [Suspect]
     Indication: METASTATIC RENAL CELL CARCINOMA
     Route: 048
     Dates: start: 20060112, end: 20060130
  2. CARDIZEM [Concomitant]
     Route: 048
  3. TYLENOL [Concomitant]
     Route: 048
  4. SYNTHROID [Concomitant]
     Route: 048
  5. NEXIUM [Concomitant]
     Route: 048
  6. ASPIRIN [Concomitant]
     Route: 048
  7. ATIVAN [Concomitant]
     Route: 048
  8. VITAMIN CAP [Concomitant]
     Route: 048
  9. ZOFRAN [Concomitant]
     Route: 048

REACTIONS (5)
  - BLOOD CREATININE INCREASED [None]
  - FATIGUE [None]
  - HYPERTENSION [None]
  - THROMBOCYTOPENIA [None]
  - THROMBOTIC THROMBOCYTOPENIC PURPURA [None]
